FAERS Safety Report 11122111 (Version 1)
Quarter: 2015Q2

REPORT INFORMATION
  Report Type: Spontaneous
  Country: US (occurrence: US)
  Receive Date: 20150519
  Receipt Date: 20150519
  Transmission Date: 20150821
  Serious: No
  Sender: FDA-Public Use
  Company Number: US-BAYER-2015-245836

PATIENT
  Age: 69 Year
  Sex: Female
  Weight: 59 kg

DRUGS (3)
  1. IMODIUM [Concomitant]
     Active Substance: LOPERAMIDE HYDROCHLORIDE
  2. CLARITIN [Suspect]
     Active Substance: LORATADINE
     Indication: DIARRHOEA
  3. CLARITIN [Suspect]
     Active Substance: LORATADINE
     Indication: BONE PAIN
     Dosage: 1 DF, PRN
     Route: 048
     Dates: start: 2000

REACTIONS (2)
  - Medication error [None]
  - Off label use [Unknown]
